FAERS Safety Report 13648455 (Version 1)
Quarter: 2017Q2

REPORT INFORMATION
  Report Type: Spontaneous
  Country: FR (occurrence: FR)
  Receive Date: 20170613
  Receipt Date: 20170613
  Transmission Date: 20170830
  Serious: Yes (Other)
  Sender: FDA-Public Use
  Company Number: FR-BAYER-2017-110339

PATIENT
  Age: 37 Year
  Sex: Female

DRUGS (1)
  1. MIRENA [Suspect]
     Active Substance: LEVONORGESTREL
     Dosage: 20 MCG/24HR, CONT
     Route: 015
     Dates: start: 20141028, end: 20151120

REACTIONS (10)
  - Vertigo [Unknown]
  - Abdominal pain lower [Unknown]
  - Libido disorder [Unknown]
  - Hot flush [Unknown]
  - Acne [Unknown]
  - Affective disorder [Unknown]
  - Hypertrichosis [Unknown]
  - Headache [Unknown]
  - Urinary tract infection [Unknown]
  - Fatigue [Unknown]

NARRATIVE: CASE EVENT DATE: 201511
